FAERS Safety Report 23812400 (Version 6)
Quarter: 2025Q4

REPORT INFORMATION
  Report Type: Report from Study
  Country: US (occurrence: US)
  Receive Date: 20240503
  Receipt Date: 20251124
  Transmission Date: 20260117
  Serious: Yes (Other)
  Sender: ROCHE
  Company Number: US-ROCHE-3472939

PATIENT
  Age: 44 Year
  Sex: Female

DRUGS (2)
  1. OCREVUS [Suspect]
     Active Substance: OCRELIZUMAB
     Indication: Relapsing multiple sclerosis
     Dosage: DATE OF TREATMENT: 28/NOV/2022, 05/JUN/2023. 05/DEC/2023
     Route: 042
     Dates: start: 202011, end: 20211001
  2. OCREVUS [Suspect]
     Active Substance: OCRELIZUMAB
     Route: 065

REACTIONS (2)
  - Optic neuritis [Recovered/Resolved]
  - Ophthalmic migraine [Unknown]

NARRATIVE: CASE EVENT DATE: 20250605
